FAERS Safety Report 7926904-0 (Version None)
Quarter: 2011Q4

REPORT INFORMATION
  Report Type: 
  Country: None (occurrence: None)
  Receive Date: 20111118
  Receipt Date: 20111116
  Transmission Date: 20120403
  Serious: Yes (Life-Threatening)
  Sender: FDA-Public Use
  Company Number: IT-PFIZER INC-2011062389

PATIENT
  Age: 45 Year
  Sex: Female

DRUGS (1)
  1. UNASYN [Suspect]
     Indication: ANTIBIOTIC PROPHYLAXIS
     Dosage: 3 G, TOTAL DOSE
     Route: 042
     Dates: start: 20110315, end: 20110315

REACTIONS (5)
  - HYPOTENSION [None]
  - FACE OEDEMA [None]
  - OEDEMA MUCOSAL [None]
  - BRONCHOSPASM [None]
  - ANAPHYLACTIC SHOCK [None]
